FAERS Safety Report 8494928-3 (Version None)
Quarter: 2012Q3

REPORT INFORMATION
  Report Type: 
  Country: None (occurrence: None)
  Receive Date: 20120709
  Receipt Date: 20120703
  Transmission Date: 20120928
  Serious: Yes (Other)
  Sender: FDA-Public Use
  Company Number: US-PFIZER INC-2012160318

PATIENT
  Sex: Male
  Weight: 139 kg

DRUGS (6)
  1. LYRICA [Suspect]
     Indication: NERVOUS SYSTEM DISORDER
     Dosage: 75 MG, DAILY
     Route: 048
     Dates: start: 20120401
  2. ONGLYZA [Concomitant]
     Indication: BLOOD GLUCOSE INCREASED
     Dosage: 5 MG, DAILY
     Route: 048
  3. LYRICA [Suspect]
     Indication: HYPOAESTHESIA
  4. GLIPIZIDE [Concomitant]
     Indication: BLOOD GLUCOSE INCREASED
     Dosage: 10 MG, 2X/DAY
  5. METFORMIN [Concomitant]
     Indication: BLOOD GLUCOSE INCREASED
     Dosage: 500 MG, DAILY
  6. LOPRESSOR [Concomitant]
     Indication: ATRIAL FIBRILLATION
     Dosage: 200 MG, DAILY

REACTIONS (4)
  - SLEEP DISORDER [None]
  - THERAPEUTIC RESPONSE UNEXPECTED [None]
  - BLOOD GLUCOSE INCREASED [None]
  - FATIGUE [None]
